FAERS Safety Report 20912700 (Version 1)
Quarter: 2022Q2

REPORT INFORMATION
  Report Type: Spontaneous
  Country: FR (occurrence: FR)
  Receive Date: 20220603
  Receipt Date: 20220603
  Transmission Date: 20220721
  Serious: Yes (Death)
  Sender: FDA-Public Use
  Company Number: None

PATIENT
  Age: 68 Year
  Sex: Male
  Weight: 90 kg

DRUGS (11)
  1. CARBOPLATIN [Suspect]
     Active Substance: CARBOPLATIN
     Indication: Lung adenocarcinoma
     Dosage: 345MG PER CURE , UNIT DOSE : 345 MG , FREQUENCY TIME : 1 TOTAL
     Route: 041
     Dates: start: 20210506
  2. PEMETREXED [Suspect]
     Active Substance: PEMETREXED
     Indication: Lung adenocarcinoma
     Dosage: 1000 MG PER COURSE, UNIT DOSE : 1000 MG , FREQUENCY TIME : 1 TOTAL
     Route: 041
     Dates: start: 20210506
  3. PEMBROLIZUMAB [Suspect]
     Active Substance: PEMBROLIZUMAB
     Indication: Lung adenocarcinoma
     Dosage: 200 MG PER COURSE , UNIT DOSE : 200 MG , FREQUENCY TIME : 1 TOTAL
     Route: 041
     Dates: start: 20210506
  4. KARDEGIC [Concomitant]
     Active Substance: ASPIRIN DL-LYSINE
     Dosage: FORM STRENGTH :75 MG, POWDER FOR ORAL SOLUTION IN SACHET-DOSE
  5. CHLORPROMAZINE [Concomitant]
     Active Substance: CHLORPROMAZINE
  6. PREVISCAN [Concomitant]
  7. ERYTHROMYCIN [Concomitant]
     Active Substance: ERYTHROMYCIN
  8. EUPANTOL [Concomitant]
     Active Substance: PANTOPRAZOLE SODIUM
     Dosage: FORM STRENGTH : 40 MG
  9. VALIUM [Concomitant]
     Active Substance: DIAZEPAM
  10. INSULIN GLARGINE [Concomitant]
     Active Substance: INSULIN GLARGINE
  11. BISOPROLOL [Concomitant]
     Active Substance: BISOPROLOL

REACTIONS (2)
  - Pancytopenia [Fatal]
  - Diarrhoea [Fatal]

NARRATIVE: CASE EVENT DATE: 20210510
